FAERS Safety Report 10409920 (Version 1)
Quarter: 2014Q3

REPORT INFORMATION
  Report Type: Spontaneous
  Country: GB (occurrence: GB)
  Receive Date: 20140826
  Receipt Date: 20140826
  Transmission Date: 20150326
  Serious: Yes (Hospitalization, Other)
  Sender: FDA-Public Use
  Company Number: GB-TEVA-502398ISR

PATIENT
  Age: 88 Year
  Sex: Female

DRUGS (10)
  1. SPIRONOLACTONE. [Suspect]
     Active Substance: SPIRONOLACTONE
     Dosage: 25 MILLIGRAM DAILY; EACH MORNING
     Route: 048
     Dates: end: 20130917
  2. ALENDRONIC ACID [Concomitant]
     Active Substance: ALENDRONIC ACID
  3. LOSARTAN [Suspect]
     Active Substance: LOSARTAN
     Dosage: 100 MILLIGRAM DAILY;
     Route: 048
     Dates: end: 20130917
  4. LEVOTHYROXINE [Concomitant]
     Active Substance: LEVOTHYROXINE
     Dosage: 75 MICROGRAM DAILY; EVERY MORNING
  5. FERROUS GLUCONATE [Concomitant]
     Active Substance: FERROUS GLUCONATE
     Dosage: 300 MILLIGRAM DAILY;
  6. ATENOLOL. [Concomitant]
     Active Substance: ATENOLOL
     Dosage: 25 MILLIGRAM DAILY; EVERY MORNING
  7. AMITRIPTYLINE [Concomitant]
     Active Substance: AMITRIPTYLINE
     Dosage: 30 MILLIGRAM DAILY; AT NIGHT
  8. FUROSEMIDE. [Suspect]
     Active Substance: FUROSEMIDE
     Dosage: 40 MILLIGRAM DAILY; EACH MORNING
     Route: 048
     Dates: end: 20130917
  9. NAPROXEN. [Suspect]
     Active Substance: NAPROXEN
     Indication: ARTHRITIS
     Dosage: 250 MILLIGRAM DAILY;
     Route: 048
     Dates: end: 20130917
  10. SIMVASTATIN. [Concomitant]
     Active Substance: SIMVASTATIN
     Dosage: 40 MILLIGRAM DAILY; AT NIGHT

REACTIONS (4)
  - Renal failure acute [Recovered/Resolved]
  - Hyperkalaemia [Unknown]
  - Fall [Recovered/Resolved]
  - Diastolic dysfunction [Unknown]

NARRATIVE: CASE EVENT DATE: 20130917
